FAERS Safety Report 14309915 (Version 3)
Quarter: 2018Q1

REPORT INFORMATION
  Report Type: Spontaneous
  Country: SE (occurrence: SE)
  Receive Date: 20171220
  Receipt Date: 20180313
  Transmission Date: 20180509
  Serious: Yes (Other)
  Sender: FDA-Public Use
  Company Number: SE-PFIZER INC-2017533743

PATIENT
  Age: 8 Year
  Sex: Male

DRUGS (5)
  1. SILDENAFIL CITRATE. [Suspect]
     Active Substance: SILDENAFIL CITRATE
     Indication: PULMONARY ARTERIAL HYPERTENSION
     Dosage: UNK
  2. REMODULIN [Suspect]
     Active Substance: TREPROSTINIL
     Indication: PULMONARY ARTERIAL HYPERTENSION
     Dosage: 0.015 ?G/KG PER MINUTE, CONTINUING
     Route: 058
     Dates: start: 20170617
  3. REMODULIN [Suspect]
     Active Substance: TREPROSTINIL
     Dosage: 0.015 UG/KG PER MINUTE
     Route: 058
     Dates: start: 20170617, end: 2017
  4. BOSENTAN. [Suspect]
     Active Substance: BOSENTAN
     Indication: PULMONARY ARTERIAL HYPERTENSION
     Dosage: 0.02 UNK, UNK
  5. REMODULIN [Suspect]
     Active Substance: TREPROSTINIL
     Dosage: 0.020 ?G/KG PER MINUTE, CONTINUING
     Route: 058
     Dates: start: 20170617, end: 2017

REACTIONS (1)
  - Pulmonary oedema [Recovered/Resolved]

NARRATIVE: CASE EVENT DATE: 20170629
